FAERS Safety Report 21544730 (Version 1)
Quarter: 2022Q4

REPORT INFORMATION
  Report Type: Spontaneous
  Country: US (occurrence: US)
  Receive Date: 20221102
  Receipt Date: 20221102
  Transmission Date: 20230113
  Serious: Yes (Life-Threatening, Hospitalization, Disabling, Other)
  Sender: FDA-Public Use
  Company Number: US-BoehringerIngelheim-2022-BI-200746

PATIENT
  Age: 65 Year
  Sex: Female

DRUGS (1)
  1. PRADAXA [Suspect]
     Active Substance: DABIGATRAN ETEXILATE MESYLATE
     Indication: Product used for unknown indication
     Dosage: PRADAXA ORAL CAPSULE 150 MG
     Route: 048
     Dates: start: 201106

REACTIONS (5)
  - Thrombosis [Recovered/Resolved]
  - Paraplegia [Recovered/Resolved]
  - Gait disturbance [Unknown]
  - Fall [Unknown]
  - Skin disorder [Unknown]

NARRATIVE: CASE EVENT DATE: 20110608
